FAERS Safety Report 5275591-1 (Version None)
Quarter: 2007Q1

REPORT INFORMATION
  Report Type: 
  Country: None (occurrence: None)
  Receive Date: 20061213
  Receipt Date: 20060419
  Transmission Date: 20070707
  Serious: No
  Sender: FDA-Public Use
  Company Number: 2006UW06905

PATIENT
  Age: 48 Year
  Sex: Female

DRUGS (5)
  1. SEROQUEL [Suspect]
     Indication: BIPOLAR DISORDER
  2. SEROQUEL [Suspect]
     Indication: SOMNOLENCE
  3. ALEVE [Concomitant]
  4. BUSPAR [Concomitant]
  5. NEURONTIN [Concomitant]

REACTIONS (2)
  - MUSCLE TWITCHING [None]
  - SWELLING [None]
